FAERS Safety Report 25915378 (Version 1)
Quarter: 2025Q4

REPORT INFORMATION
  Report Type: Spontaneous
  Country: US (occurrence: US)
  Receive Date: 20251013
  Receipt Date: 20251013
  Transmission Date: 20260118
  Serious: Yes (Other)
  Sender: ANI
  Company Number: US-ANIPHARMA-2025-US-034184

PATIENT
  Age: 42 Year
  Sex: Female

DRUGS (10)
  1. CORTICOTROPIN [Suspect]
     Active Substance: CORTICOTROPIN
     Indication: Multiple sclerosis
     Dosage: INJECT 80 UNITS (1ML) SUBCUTANEOUSLY ONCE DAILY FOR 2-3 WEEKS AS DIRECTED (DISCARD OPEN VIAL 28 DAYS
     Route: 058
  2. TYSABRI [Concomitant]
     Active Substance: NATALIZUMAB
  3. ALPRAZOLAM [Concomitant]
     Active Substance: ALPRAZOLAM
  4. PREGABALIN [Concomitant]
     Active Substance: PREGABALIN
  5. XEOMIN [Concomitant]
     Active Substance: INCOBOTULINUMTOXINA
  6. ESTRADIOL [Concomitant]
     Active Substance: ESTRADIOL
  7. BACLOFEN [Concomitant]
     Active Substance: BACLOFEN
  8. DALFAMPRIDINE [Concomitant]
     Active Substance: DALFAMPRIDINE
  9. PROGESTERONE [Concomitant]
     Active Substance: PROGESTERONE
  10. D2000 ULTRA STRENGTH [Concomitant]

REACTIONS (1)
  - Multiple sclerosis relapse [Unknown]

NARRATIVE: CASE EVENT DATE: 20241201
